FAERS Safety Report 4407518-6 (Version None)
Quarter: 2004Q3

REPORT INFORMATION
  Report Type: 
  Country: None (occurrence: None)
  Receive Date: 20040721
  Receipt Date: 20040708
  Transmission Date: 20050211
  Serious: Yes (Disabling)
  Sender: FDA-Public Use
  Company Number: 2004220516E

PATIENT
  Age: 60 Year
  Sex: Female
  Weight: 76.2 kg

DRUGS (3)
  1. BEXTRA [Suspect]
     Indication: BACK PAIN
     Dosage: 10 MG, QD, ORAL
     Route: 048
  2. NATRILIX [Concomitant]
  3. ISTIN (AMLODIPINE BESILATE) [Concomitant]

REACTIONS (4)
  - ACTIVITIES OF DAILY LIVING IMPAIRED [None]
  - CONFUSIONAL STATE [None]
  - DIZZINESS [None]
  - LETHARGY [None]
